FAERS Safety Report 18287098 (Version 3)
Quarter: 2020Q4

REPORT INFORMATION
  Report Type: Report from Study
  Country: IE (occurrence: IE)
  Receive Date: 20200921
  Receipt Date: 20201022
  Transmission Date: 20210113
  Serious: Yes (Other)
  Sender: FDA-Public Use
  Company Number: IE-EMD SERONO-9186367

PATIENT
  Sex: Male

DRUGS (4)
  1. MAVENCLAD [Suspect]
     Active Substance: CLADRIBINE
     Indication: RELAPSING-REMITTING MULTIPLE SCLEROSIS
     Dosage: YEAR ONE WEEK ONE THERAPY: 2 DOSAGE FORMS ON DAYS 1-2 AND ONE DOSAGE FORM ON DAYS 3-5.
     Route: 048
     Dates: start: 20190624
  2. MAVENCLAD [Suspect]
     Active Substance: CLADRIBINE
     Dosage: YEAR ONE WEEK FIVE THERAPY: 2 DOSAGE FORMS ON DAYS 1-2 AND ONE DOSAGE FORM ON DAYS 3-5.
     Route: 048
     Dates: start: 20190722
  3. MAVENCLAD [Suspect]
     Active Substance: CLADRIBINE
     Dosage: YEAR 2 WEEK 5 THERAPY:PRESCRIBED TO TAKE 2 DOSAGE FORMS ON DAYS 1-2 AND ONE DOSAGE FORM ON DAYS 3-5.
     Route: 048
     Dates: start: 20201012
  4. MAVENCLAD [Suspect]
     Active Substance: CLADRIBINE
     Dosage: YEAR TWO WEEK ONE THERAPY: 2 DOSAGE FORMS ON DAYS 1-2 AND ONE DOSAGE FORM ON DAYS 3-5.
     Route: 048
     Dates: start: 20200907

REACTIONS (1)
  - Pulmonary mass [Not Recovered/Not Resolved]
